FAERS Safety Report 5921255-8 (Version None)
Quarter: 2008Q4

REPORT INFORMATION
  Report Type: 
  Country: None (occurrence: None)
  Receive Date: 20081014
  Receipt Date: 20081006
  Transmission Date: 20090506
  Serious: Yes (Other)
  Sender: FDA-Public Use
  Company Number: 2008SP019431

PATIENT
  Age: 58 Year
  Sex: Female

DRUGS (1)
  1. INTRON A [Suspect]
     Indication: HEPATITIS C

REACTIONS (3)
  - BRADYPHRENIA [None]
  - DEMENTIA [None]
  - STUPOR [None]
